FAERS Safety Report 5219071-8 (Version None)
Quarter: 2007Q1

REPORT INFORMATION
  Report Type: 
  Country: None (occurrence: None)
  Receive Date: 20070124
  Receipt Date: 20070124
  Transmission Date: 20070707
  Serious: No
  Sender: FDA-Public Use
  Company Number: None

PATIENT
  Sex: Male
  Weight: 74 kg

DRUGS (4)
  1. FLUOROURACIL [Suspect]
     Dosage: 10696
     Dates: end: 20061213
  2. BEVACIZUMAB (RHUMAB VEGF) [Suspect]
     Dosage: 730 MG
     Dates: end: 20061212
  3. LEUCOVORIN CALCIUM [Suspect]
     Dosage: 1528 MG
     Dates: end: 20061213
  4. ELOXATIN [Suspect]
     Dosage: 324 MG
     Dates: end: 20061213

REACTIONS (1)
  - NEUTROPHIL COUNT DECREASED [None]
